FAERS Safety Report 8389008-1 (Version None)
Quarter: 2012Q2

REPORT INFORMATION
  Report Type: 
  Country: None (occurrence: None)
  Receive Date: 20120528
  Receipt Date: 20120522
  Transmission Date: 20120825
  Serious: Yes (Other)
  Sender: FDA-Public Use
  Company Number: US-PFIZER INC-2012084287

PATIENT
  Sex: Male

DRUGS (12)
  1. METFORMIN [Concomitant]
     Dosage: 500 MG
  2. VIAGRA [Suspect]
     Dosage: 50 MG, AS NEEDED
     Route: 048
  3. BACLOFEN [Concomitant]
     Dosage: 300 MG, 1X/DAY
  4. ALBUTEROL [Concomitant]
     Dosage: UNK
  5. DOC-Q-LACE [Concomitant]
     Dosage: 100 MG, 2X/DAY
  6. TRAZODONE [Concomitant]
     Dosage: 100 MG, 1X/DAY
  7. GABAPENTIN [Concomitant]
     Dosage: 600 MG, 4X/DAY
  8. AMLODIPINE BESILATE [Concomitant]
     Dosage: 10 MG, 1X/DAY
  9. NORCO [Concomitant]
     Dosage: 10/325 MG, 4X/DAY
  10. IBUPROFEN [Concomitant]
     Dosage: 600 MG, 3X/DAY
  11. VYTORIN [Concomitant]
     Dosage: 10/40, NIGHTLY
  12. PROTONIX [Concomitant]
     Dosage: 40 MG, 1X/DAY

REACTIONS (2)
  - DIABETES MELLITUS [None]
  - ERECTILE DYSFUNCTION [None]
